FAERS Safety Report 23423269 (Version 2)
Quarter: 2024Q1

REPORT INFORMATION
  Report Type: Other
  Country: US (occurrence: None)
  Receive Date: 20240119
  Receipt Date: 20240216
  Transmission Date: 20240409
  Serious: Yes (Other)
  Sender: FDA-Public Use
  Company Number: US-ROCHE-3491704

PATIENT
  Age: 59 Year
  Sex: Female

DRUGS (8)
  1. OCREVUS [Suspect]
     Active Substance: OCRELIZUMAB
     Indication: Relapsing multiple sclerosis
     Dosage: 300MG/10ML, REPEAT IN 2 WEEKS AND THEN 600MG/10ML EVERY 6 MONTHS, DATE OF TREATMENT = 12/SEP/2023, 0
     Route: 042
     Dates: start: 2017
  2. COPAXONE [Concomitant]
     Active Substance: GLATIRAMER ACETATE
  3. ARICEPT [Concomitant]
     Active Substance: DONEPEZIL HYDROCHLORIDE
  4. ATENOLOL [Concomitant]
     Active Substance: ATENOLOL
  5. HYOSCYAMINE SULFATE [Concomitant]
     Active Substance: HYOSCYAMINE SULFATE
  6. FLUTICASONE PROPIONATE [Concomitant]
     Active Substance: FLUTICASONE PROPIONATE
  7. WARFARIN SODIUM [Concomitant]
     Active Substance: WARFARIN SODIUM
  8. ESCITALOPRAM OXALATE [Concomitant]
     Active Substance: ESCITALOPRAM OXALATE

REACTIONS (24)
  - Urinary tract infection [Unknown]
  - Fall [Unknown]
  - Scar [Unknown]
  - Arrhythmia [Unknown]
  - Palpitations [Unknown]
  - Neck pain [Unknown]
  - Back pain [Unknown]
  - Memory impairment [Unknown]
  - Somnolence [Unknown]
  - Muscle spasms [Unknown]
  - Loss of consciousness [Unknown]
  - Dizziness [Unknown]
  - Road traffic accident [Unknown]
  - Muscle rigidity [Unknown]
  - Pain in extremity [Unknown]
  - Tremor [Unknown]
  - Temperature intolerance [Unknown]
  - Sexual dysfunction [Unknown]
  - Erectile dysfunction [Unknown]
  - Headache [Unknown]
  - Asthenia [Unknown]
  - Panic attack [Unknown]
  - Depression [Unknown]
  - Fear [Unknown]
